FAERS Safety Report 10048461 (Version 2)
Quarter: 2014Q2

REPORT INFORMATION
  Report Type: Spontaneous
  Country: US (occurrence: None)
  Receive Date: 20140327
  Receipt Date: 20140411
  Transmission Date: 20141212
  Serious: Yes (Hospitalization, Other)
  Sender: FDA-Public Use
  Company Number: 2014-US-003135

PATIENT
  Age: 49 Year
  Sex: Male

DRUGS (2)
  1. XYREM [Suspect]
     Indication: CATAPLEXY
     Route: 048
     Dates: start: 201211, end: 2012
  2. XYREM [Suspect]
     Indication: NARCOLEPSY
     Route: 048
     Dates: start: 201211, end: 2012

REACTIONS (4)
  - Chest pain [None]
  - Diabetes mellitus [None]
  - Sleep apnoea syndrome [None]
  - Obesity [None]
